FAERS Safety Report 13668392 (Version 1)
Quarter: 2017Q2

REPORT INFORMATION
  Report Type: Spontaneous
  Country: US (occurrence: US)
  Receive Date: 20170619
  Receipt Date: 20170619
  Transmission Date: 20170830
  Serious: Yes (Disabling)
  Sender: FDA-Public Use
  Company Number: None

PATIENT
  Age: 18 Year
  Sex: Male
  Weight: 49.5 kg

DRUGS (7)
  1. METHROTEXATE [Concomitant]
  2. SULFASALAZINE. [Concomitant]
     Active Substance: SULFASALAZINE
  3. CLINDAMYCIN. [Suspect]
     Active Substance: CLINDAMYCIN
     Indication: ACNE
     Dosage: ?          QUANTITY:1 INJECTION(S);?
     Route: 061
     Dates: start: 20170617, end: 20170619
  4. FOLIC ACID. [Concomitant]
     Active Substance: FOLIC ACID
  5. DICOLFENAC [Concomitant]
  6. ZANTAC [Concomitant]
     Active Substance: RANITIDINE HYDROCHLORIDE
  7. XELJANZ [Concomitant]
     Active Substance: TOFACITINIB CITRATE

REACTIONS (1)
  - Acne [None]

NARRATIVE: CASE EVENT DATE: 20170617
